FAERS Safety Report 10065906 (Version 2)
Quarter: 2014Q2

REPORT INFORMATION
  Report Type: Spontaneous
  Country: US (occurrence: US)
  Receive Date: 20140408
  Receipt Date: 20140408
  Transmission Date: 20141212
  Serious: No
  Sender: FDA-Public Use
  Company Number: US-ASTELLAS-2014US000513

PATIENT
  Age: 60 Year
  Sex: Male

DRUGS (2)
  1. MYRBETRIQ [Suspect]
     Indication: PRODUCT USED FOR UNKNOWN INDICATION
     Dosage: 25 MG, ONCE DAILY
     Route: 048
     Dates: start: 201401, end: 201401
  2. MYRBETRIQ [Suspect]
     Dosage: 25 MG, ONCE DAILY
     Route: 048
     Dates: start: 20140210

REACTIONS (7)
  - Anxiety [Unknown]
  - Nasal congestion [Recovered/Resolved]
  - Headache [Unknown]
  - Abdominal distension [Unknown]
  - Diarrhoea [Recovered/Resolved]
  - Abdominal pain [Recovered/Resolved]
  - Dizziness [Unknown]
